FAERS Safety Report 8722366 (Version 5)
Quarter: 2013Q1

REPORT INFORMATION
  Report Type: Spontaneous
  Country: GB (occurrence: GB)
  Receive Date: 20120814
  Receipt Date: 20130121
  Transmission Date: 20140127
  Serious: Yes (Hospitalization, Other)
  Sender: FDA-Public Use
  Company Number: GB-009507513-1208GBR004754

PATIENT
  Age: 63 Year
  Sex: Female

DRUGS (3)
  1. SIMVASTATIN [Suspect]
     Route: 048
  2. DENZAPINE [Suspect]
     Indication: SCHIZOPHRENIA
     Dosage: UNK
     Route: 048
     Dates: start: 20120731
  3. PLENDIL [Suspect]

REACTIONS (1)
  - Cerebrovascular accident [Not Recovered/Not Resolved]
